FAERS Safety Report 7108482-1 (Version None)
Quarter: 2010Q4

REPORT INFORMATION
  Report Type: 
  Country: None (occurrence: None)
  Receive Date: 20101115
  Receipt Date: 20101115
  Transmission Date: 20110411
  Serious: Yes (Other)
  Sender: FDA-Public Use
  Company Number: None

PATIENT
  Age: 92 Year
  Sex: Female

DRUGS (4)
  1. TYLENOL-500 [Suspect]
     Indication: HEADACHE
     Dosage: 1 TIME
  2. TYLENOL-500 [Suspect]
     Indication: NASOPHARYNGITIS
     Dosage: 1 TIME
  3. TYLENOL-500 [Suspect]
     Indication: HEADACHE
     Dosage: 2 TIME
  4. TYLENOL-500 [Suspect]
     Indication: NASOPHARYNGITIS
     Dosage: 2 TIME

REACTIONS (4)
  - MALAISE [None]
  - PALPITATIONS [None]
  - PRODUCT ODOUR ABNORMAL [None]
  - PRODUCT PACKAGING ISSUE [None]
